FAERS Safety Report 5799576-1 (Version None)
Quarter: 2008Q3

REPORT INFORMATION
  Report Type: 
  Country: None (occurrence: None)
  Receive Date: 20080703
  Receipt Date: 20080630
  Transmission Date: 20090109
  Serious: Yes (Hospitalization)
  Sender: FDA-Public Use
  Company Number: DE-WYE-G01783908

PATIENT
  Age: 51 Year
  Sex: Male
  Weight: 75 kg

DRUGS (4)
  1. RAPAMUNE [Suspect]
     Indication: PROPHYLAXIS AGAINST TRANSPLANT REJECTION
     Dosage: 6 MG PER DAY
     Route: 048
     Dates: start: 20050803
  2. MYCOPHENOLATE MOFETIL [Suspect]
     Indication: PROPHYLAXIS AGAINST TRANSPLANT REJECTION
     Dosage: 3000 MG PER DAY
     Route: 048
     Dates: start: 20050621, end: 20050809
  3. MYCOPHENOLATE MOFETIL [Suspect]
     Dosage: 1500 MG PER DAY
     Route: 048
     Dates: start: 20050810, end: 20051019
  4. MYCOPHENOLATE MOFETIL [Suspect]
     Dosage: 2000 MG PER DAY
     Route: 048
     Dates: start: 20051020

REACTIONS (1)
  - KIDNEY TRANSPLANT REJECTION [None]
